FAERS Safety Report 23720048 (Version 1)
Quarter: 2024Q2

REPORT INFORMATION
  Report Type: Spontaneous
  Country: HR (occurrence: HR)
  Receive Date: 20240408
  Receipt Date: 20240408
  Transmission Date: 20240715
  Serious: Yes (Other)
  Sender: FDA-Public Use
  Company Number: HR-BAYER-2024A047146

PATIENT
  Age: 41 Year
  Sex: Female

DRUGS (2)
  1. RIOCIGUAT [Suspect]
     Active Substance: RIOCIGUAT
     Indication: Pulmonary arterial hypertension
     Dosage: UNK
     Dates: start: 2022
  2. SOTATERCEPT [Concomitant]
     Active Substance: SOTATERCEPT

REACTIONS (1)
  - Lung transplant [None]

NARRATIVE: CASE EVENT DATE: 20230601
